FAERS Safety Report 13029953 (Version 1)
Quarter: 2016Q4

REPORT INFORMATION
  Report Type: Spontaneous
  Country: US (occurrence: US)
  Receive Date: 20161214
  Receipt Date: 20161214
  Transmission Date: 20170207
  Serious: Yes (Life-Threatening)
  Sender: FDA-Public Use
  Company Number: None

PATIENT
  Age: 68 Year
  Sex: Female
  Weight: 57 kg

DRUGS (1)
  1. INVOKANA [Suspect]
     Active Substance: CANAGLIFLOZIN

REACTIONS (4)
  - Procedural complication [None]
  - Small intestinal obstruction [None]
  - Diabetic ketoacidosis [None]
  - Metabolic acidosis [None]

NARRATIVE: CASE EVENT DATE: 20160528
